FAERS Safety Report 9908496 (Version 2)
Quarter: 2015Q1

REPORT INFORMATION
  Report Type: Report from Study
  Country: US (occurrence: US)
  Receive Date: 20140219
  Receipt Date: 20150114
  Transmission Date: 20150721
  Serious: Yes (Death)
  Sender: FDA-Public Use
  Company Number: US-ROCHE-1328573

PATIENT
  Sex: Female
  Weight: 69.01 kg

DRUGS (6)
  1. AVASTIN [Suspect]
     Active Substance: BEVACIZUMAB
     Indication: METASTASES TO LYMPH NODES
  2. VINORELBINE [Concomitant]
     Active Substance: VINORELBINE\VINORELBINE TARTRATE
     Indication: BREAST CANCER
  3. AVASTIN [Suspect]
     Active Substance: BEVACIZUMAB
     Indication: METASTASES TO BONE
  4. NAVELBINE [Concomitant]
     Active Substance: VINORELBINE TARTRATE
     Route: 042
  5. AVASTIN [Suspect]
     Active Substance: BEVACIZUMAB
     Indication: BREAST CANCER METASTATIC
     Dosage: 10 MG/KG, DAY 1 AND DAY 15
     Route: 042
     Dates: start: 20101206
  6. AVASTIN [Suspect]
     Active Substance: BEVACIZUMAB
     Indication: METASTASES TO LIVER

REACTIONS (3)
  - Anaemia [Unknown]
  - Death [Fatal]
  - Neutropenia [Unknown]
